FAERS Safety Report 5103678-2 (Version None)
Quarter: 2006Q3

REPORT INFORMATION
  Report Type: 
  Country: None (occurrence: None)
  Receive Date: 20060731
  Receipt Date: 20051108
  Transmission Date: 20061208
  Serious: Yes (Hospitalization)
  Sender: FDA-Public Use
  Company Number: US-JNJFOC-20050804784

PATIENT
  Age: 63 Year
  Sex: Female
  Weight: 90.7194 kg

DRUGS (6)
  1. RISPERDAL CONSTA [Suspect]
     Indication: SCHIZOAFFECTIVE DISORDER
     Dosage: 25 MG, 1 IN 2 WEEK, INTRAMUSCULAR, SEE IMAGE
     Route: 030
     Dates: start: 20050501, end: 20050701
  2. RISPERDAL CONSTA [Suspect]
     Indication: SCHIZOAFFECTIVE DISORDER
     Dosage: 25 MG, 1 IN 2 WEEK, INTRAMUSCULAR, SEE IMAGE
     Route: 030
     Dates: start: 20050701
  3. RISPERDAL [Suspect]
     Indication: SCHIZOPHRENIA
     Dosage: ORAL
     Route: 048
  4. HALDOL DECANOATE INJECTION (HALOPERIDOL DECANOATE) INJECTION [Suspect]
     Indication: SCHIZOPHRENIA
     Dosage: 200 MG, 1 IN 3 WEEK, INTRAMUSCULAR
     Route: 030
     Dates: start: 20050304
  5. HALDOL [Suspect]
     Indication: SCHIZOPHRENIA
     Dosage: 10 MG, 1 IN 1 DAY, ORAL
     Route: 048
  6. DEPAKOTE [Concomitant]

REACTIONS (9)
  - AGGRESSION [None]
  - CONFUSIONAL STATE [None]
  - DELUSION [None]
  - HEADACHE [None]
  - INSOMNIA [None]
  - IRRITABILITY [None]
  - MUSCULOSKELETAL STIFFNESS [None]
  - PARANOIA [None]
  - PSYCHOTIC DISORDER [None]
